FAERS Safety Report 4424921-9 (Version None)
Quarter: 2004Q3

REPORT INFORMATION
  Report Type: 
  Country: None (occurrence: None)
  Receive Date: 20040719
  Receipt Date: 20040326
  Transmission Date: 20050211
  Serious: Yes (Hospitalization)
  Sender: FDA-Public Use
  Company Number: 194951

PATIENT
  Age: 46 Year
  Sex: Female
  Weight: 129.2752 kg

DRUGS (7)
  1. AVONEX [Suspect]
     Indication: MULTIPLE SCLEROSIS
     Dosage: 30 MCG QW IM
     Route: 030
     Dates: start: 19981201, end: 20030901
  2. AVONEX [Suspect]
     Indication: MULTIPLE SCLEROSIS
     Dosage: 30 MCG QW IM
     Route: 030
     Dates: start: 20030901
  3. DIOVAN [Concomitant]
  4. SERAX [Concomitant]
  5. VIVELLE [Concomitant]
  6. PRILOSEC [Concomitant]
  7. SOLU-MEDROL [Concomitant]

REACTIONS (24)
  - BLOOD GLUCOSE INCREASED [None]
  - BLOOD POTASSIUM DECREASED [None]
  - BRONCHITIS [None]
  - CATHETER RELATED COMPLICATION [None]
  - COLLAPSE OF LUNG [None]
  - COUGH [None]
  - DERMATITIS CONTACT [None]
  - DIABETES MELLITUS [None]
  - FALL [None]
  - HYPERTENSION [None]
  - HYPOTENSION [None]
  - INFLUENZA LIKE ILLNESS [None]
  - INJECTION SITE ERYTHEMA [None]
  - INJECTION SITE HAEMORRHAGE [None]
  - INJECTION SITE MASS [None]
  - LOBAR PNEUMONIA [None]
  - LOSS OF CONSCIOUSNESS [None]
  - MULTIPLE SCLEROSIS RELAPSE [None]
  - OEDEMA PERIPHERAL [None]
  - PAIN IN EXTREMITY [None]
  - PLEURAL EFFUSION [None]
  - RIB FRACTURE [None]
  - SKIN LACERATION [None]
  - VEIN DISORDER [None]
